FAERS Safety Report 5878224-6 (Version None)
Quarter: 2008Q3

REPORT INFORMATION
  Report Type: 
  Country: None (occurrence: None)
  Receive Date: 20080911
  Receipt Date: 20080901
  Transmission Date: 20090109
  Serious: Yes (Hospitalization)
  Sender: FDA-Public Use
  Company Number: GB-ELI_LILLY_AND_COMPANY-GB200806002030

PATIENT
  Sex: Female
  Weight: 60 kg

DRUGS (2)
  1. PROZAC [Suspect]
     Indication: DEPRESSION
     Dosage: 10 MG, UNK
     Route: 048
     Dates: start: 20080401, end: 20080101
  2. PROZAC [Suspect]
     Dosage: 20 MG, UNK
     Route: 048
     Dates: start: 20080101, end: 20080101

REACTIONS (5)
  - ARTHRALGIA [None]
  - HOSPITALISATION [None]
  - PAIN IN EXTREMITY [None]
  - SKIN EXFOLIATION [None]
  - SUBCUTANEOUS NODULE [None]
